FAERS Safety Report 7366916-1 (Version None)
Quarter: 2011Q1

REPORT INFORMATION
  Report Type: 
  Country: None (occurrence: None)
  Receive Date: 20110322
  Receipt Date: 20110314
  Transmission Date: 20110831
  Serious: Yes (Other)
  Sender: FDA-Public Use
  Company Number: B0702804A

PATIENT
  Sex: Female
  Weight: 75 kg

DRUGS (10)
  1. FUCIDINE CAP [Suspect]
     Dosage: 500MG THREE TIMES PER DAY
     Route: 048
     Dates: end: 20100715
  2. RIMACTANE [Suspect]
     Dosage: 300MG THREE TIMES PER DAY
     Route: 048
     Dates: end: 20100715
  3. BISACODYL [Suspect]
     Dosage: 5MG PER DAY
     Route: 048
     Dates: end: 20100715
  4. AMLODIPINE [Concomitant]
     Indication: HYPERTENSION
     Dosage: 10MG PER DAY
  5. OXYNORM [Concomitant]
  6. DICLOXACILLIN [Concomitant]
     Dosage: 1G THREE TIMES PER DAY
     Dates: end: 20100425
  7. LAMICTAL [Suspect]
     Indication: EPILEPSY
     Route: 048
     Dates: start: 19800101
  8. GENTAMICIN [Suspect]
     Indication: HYPERTENSION
     Route: 048
  9. ZINACEF [Suspect]
     Dosage: 1.5MG THREE TIMES PER DAY
     Route: 030
     Dates: end: 20100425
  10. CORODIL [Concomitant]
     Indication: HYPERTENSION
     Dosage: 10MG PER DAY
     Route: 048

REACTIONS (3)
  - INTESTINAL FUNCTIONAL DISORDER [None]
  - DRUG INTERACTION [None]
  - GRAND MAL CONVULSION [None]
